FAERS Safety Report 13477576 (Version 2)
Quarter: 2017Q3

REPORT INFORMATION
  Report Type: Spontaneous
  Country: CH (occurrence: CH)
  Receive Date: 20170425
  Receipt Date: 20170727
  Transmission Date: 20171127
  Serious: Yes (Death)
  Sender: FDA-Public Use
  Company Number: CH-PFIZER INC-2017176214

PATIENT
  Age: 79 Year
  Sex: Female
  Weight: 60 kg

DRUGS (2)
  1. ASPIRIN /00002701/ [Concomitant]
     Active Substance: ASPIRIN
     Indication: PROPHYLAXIS
     Dosage: 100 MG, 1X/DAY
     Route: 048
     Dates: start: 20170216
  2. XALKORI [Suspect]
     Active Substance: CRIZOTINIB
     Indication: NON-SMALL CELL LUNG CANCER
     Dosage: 250 MG, 1X/DAY
     Route: 048
     Dates: start: 20170303, end: 20170311

REACTIONS (4)
  - Cerebral haemorrhage [Fatal]
  - Product use in unapproved indication [Unknown]
  - Pulmonary embolism [Fatal]
  - Arrhythmia [Fatal]

NARRATIVE: CASE EVENT DATE: 20170303
